FAERS Safety Report 7124271-6 (Version None)
Quarter: 2010Q4

REPORT INFORMATION
  Report Type: 
  Country: None (occurrence: None)
  Receive Date: 20101126
  Receipt Date: 20101115
  Transmission Date: 20110411
  Serious: Yes (Other)
  Sender: FDA-Public Use
  Company Number: PHHY2010FR01051

PATIENT
  Sex: Female
  Weight: 73 kg

DRUGS (4)
  1. ZOMETA [Suspect]
     Indication: METASTASES TO BONE
     Dosage: 4 MG
     Route: 042
     Dates: start: 20091201
  2. TAMOXIFEN [Suspect]
     Dosage: UNK
     Dates: start: 20091101
  3. TAXOL [Suspect]
  4. AVASTIN [Suspect]

REACTIONS (3)
  - ABORTION INDUCED [None]
  - DRUG EXPOSURE DURING PREGNANCY [None]
  - HIP SURGERY [None]
